FAERS Safety Report 9444372 (Version 2)
Quarter: 2013Q3

REPORT INFORMATION
  Report Type: Spontaneous
  Country: US (occurrence: None)
  Receive Date: 20130805
  Receipt Date: 20130809
  Transmission Date: 20140515
  Serious: Yes (Death)
  Sender: FDA-Public Use
  Company Number: UTC-035879

PATIENT
  Age: 74 Year
  Sex: Male
  Weight: 109.2 kg

DRUGS (1)
  1. REMODULIN [Suspect]
     Indication: COR PULMONALE CHRONIC
     Dosage: 0.029 UG/KG, 1 IN 1 MIN INJECTION FOR INFUSION
     Route: 058
     Dates: start: 20130307

REACTIONS (2)
  - Death [None]
  - Respiratory failure [None]
